FAERS Safety Report 8062104-4 (Version None)
Quarter: 2012Q1

REPORT INFORMATION
  Report Type: 
  Country: None (occurrence: None)
  Receive Date: 20120118
  Receipt Date: 20120109
  Transmission Date: 20120608
  Serious: Yes (Death)
  Sender: FDA-Public Use
  Company Number: JPI-P-007005

PATIENT
  Age: 79 Year
  Sex: Male

DRUGS (2)
  1. XYREM [Suspect]
     Indication: CATAPLEXY
     Dosage: (UNKNOWN), ORAL (7.5 GM, 1 D), ORAL
     Route: 048
     Dates: start: 20071107
  2. XYREM [Suspect]
     Indication: SOMNOLENCE
     Dosage: (UNKNOWN), ORAL (7.5 GM, 1 D), ORAL
     Route: 048
     Dates: start: 20071107

REACTIONS (3)
  - DIABETES MELLITUS [None]
  - CARDIAC FAILURE CONGESTIVE [None]
  - ESSENTIAL HYPERTENSION [None]
